FAERS Safety Report 20320981 (Version 5)
Quarter: 2022Q2

REPORT INFORMATION
  Report Type: Spontaneous
  Country: US (occurrence: US)
  Receive Date: 20220111
  Receipt Date: 20220506
  Transmission Date: 20220721
  Serious: No
  Sender: FDA-Public Use
  Company Number: US-JNJFOC-20220103794

PATIENT
  Sex: Male

DRUGS (2)
  1. ERLEADA [Suspect]
     Active Substance: APALUTAMIDE
     Indication: Product used for unknown indication
     Dosage: DOSE REDUCED TO 3 TABLETS PER DAY BUT IT WAS NOW BACK UP TO 4 TABLETS PER DAY.
     Route: 048
     Dates: start: 20211221
  2. MAGNESIUM [Concomitant]
     Active Substance: MAGNESIUM

REACTIONS (5)
  - Diarrhoea [Not Recovered/Not Resolved]
  - Respiratory tract infection viral [Unknown]
  - Fatigue [Recovering/Resolving]
  - Blood glucose decreased [Unknown]
  - Glycosylated haemoglobin abnormal [Unknown]

NARRATIVE: CASE EVENT DATE: 20211201
